FAERS Safety Report 14039095 (Version 1)
Quarter: 2017Q4

REPORT INFORMATION
  Report Type: Other
  Country: FR (occurrence: FR)
  Receive Date: 20171004
  Receipt Date: 20171004
  Transmission Date: 20180321
  Serious: Yes (Hospitalization)
  Sender: FDA-Public Use
  Company Number: FR-CELLTRION INC.-2017FR013213

PATIENT

DRUGS (6)
  1. BETNEVAL [Concomitant]
     Active Substance: BETAMETHASONE VALERATE
     Route: 065
  2. INFLECTRA [Suspect]
     Active Substance: INFLIXIMAB-DYYB
     Indication: ERYTHRODERMIC PSORIASIS
     Dosage: 5 MG/KG, CYCLIC
     Route: 042
     Dates: start: 201701, end: 20170821
  3. LEVOTHYROX [Concomitant]
     Active Substance: LEVOTHYROXINE
     Dosage: 50 ?G, DAILY
     Route: 065
  4. XANAX [Concomitant]
     Active Substance: ALPRAZOLAM
     Route: 065
  5. LOCAPRED [Concomitant]
     Active Substance: DESONIDE
     Route: 065
  6. DEXERYL                            /00557601/ [Concomitant]
     Active Substance: GLYCERIN\PARAFFIN
     Route: 065

REACTIONS (4)
  - Dyspnoea [Recovered/Resolved]
  - Sense of oppression [Recovered/Resolved]
  - Erythema [Recovered/Resolved]
  - Hypersensitivity [Recovered/Resolved]

NARRATIVE: CASE EVENT DATE: 20170821
